FAERS Safety Report 10360360 (Version 4)
Quarter: 2014Q3

REPORT INFORMATION
  Report Type: Spontaneous
  Country: US (occurrence: US)
  Receive Date: 20140804
  Receipt Date: 20140915
  Transmission Date: 20150326
  Serious: Yes (Other)
  Sender: FDA-Public Use
  Company Number: US-BAYER-2014-113959

PATIENT
  Age: 40 Year
  Sex: Female
  Weight: 71.66 kg

DRUGS (1)
  1. MIRENA [Suspect]
     Active Substance: LEVONORGESTREL
     Indication: CONTRACEPTION
     Dosage: 20 MCG/24HR, CONT
     Route: 015
     Dates: start: 20090623, end: 20140731

REACTIONS (4)
  - Device difficult to use [Recovered/Resolved]
  - Device dislocation [None]
  - Device breakage [Recovered/Resolved]
  - Device misuse [None]

NARRATIVE: CASE EVENT DATE: 20090623
